FAERS Safety Report 15773383 (Version 1)
Quarter: 2018Q4

REPORT INFORMATION
  Report Type: Spontaneous
  Country: US (occurrence: US)
  Receive Date: 20181228
  Receipt Date: 20181228
  Transmission Date: 20190205
  Serious: No
  Sender: FDA-Public Use
  Company Number: US-NEUROCRINE BIOSCIENCES INC.-2018NBI03594

PATIENT
  Age: 22 Year
  Sex: Male

DRUGS (6)
  1. INVEGA [Concomitant]
     Active Substance: PALIPERIDONE
  2. CLONIDINE. [Concomitant]
     Active Substance: CLONIDINE
  3. INGREZZA [Suspect]
     Active Substance: VALBENAZINE
     Indication: TARDIVE DYSKINESIA
     Dates: start: 20181214
  4. DOXYCYCLINE. [Concomitant]
     Active Substance: DOXYCYCLINE
     Indication: SKIN DISORDER
  5. BENZTROPINE. [Concomitant]
     Active Substance: BENZTROPINE
  6. BENZTROPINE. [Concomitant]
     Active Substance: BENZTROPINE

REACTIONS (5)
  - Feeling abnormal [Not Recovered/Not Resolved]
  - Nasopharyngitis [Not Recovered/Not Resolved]
  - Fatigue [Not Recovered/Not Resolved]
  - Euphoric mood [Not Recovered/Not Resolved]
  - Somnolence [Not Recovered/Not Resolved]

NARRATIVE: CASE EVENT DATE: 20181214
